FAERS Safety Report 7069283-6 (Version None)
Quarter: 2010Q4

REPORT INFORMATION
  Report Type: 
  Country: None (occurrence: None)
  Receive Date: 20101028
  Receipt Date: 20101026
  Transmission Date: 20110411
  Serious: Yes (Other)
  Sender: FDA-Public Use
  Company Number: US-WYE-H18375110

PATIENT
  Sex: Male
  Weight: 186.59 kg

DRUGS (3)
  1. TYGACIL [Suspect]
     Indication: LOCALISED INFECTION
     Dosage: UNKNOWN
     Route: 042
     Dates: start: 20101024
  2. CLINDAMYCIN [Suspect]
     Indication: LOCALISED INFECTION
     Dosage: UNKNOWN
     Dates: end: 20101001
  3. VANCOMYCIN [Suspect]
     Indication: LOCALISED INFECTION
     Dosage: UNKNOWN
     Dates: start: 20101001, end: 20101001

REACTIONS (5)
  - DIARRHOEA [None]
  - FLUID RETENTION [None]
  - VOMITING [None]
  - WEIGHT INCREASED [None]
  - WHITE BLOOD CELL COUNT INCREASED [None]
